FAERS Safety Report 9510388 (Version 2)
Quarter: 2013Q3

REPORT INFORMATION
  Report Type: Spontaneous
  Country: US (occurrence: US)
  Receive Date: 20130909
  Receipt Date: 20130909
  Transmission Date: 20140515
  Serious: No
  Sender: FDA-Public Use
  Company Number: US-BRISTOL-MYERS SQUIBB COMPANY-17427154

PATIENT
  Age: 52 Year
  Sex: Female

DRUGS (2)
  1. ABILIFY TABS 10 MG [Suspect]
     Dosage: PREVIOUSLY TAKING 2MG,5MG,10MG
  2. VIIBRYD [Suspect]
     Indication: SUICIDAL IDEATION

REACTIONS (3)
  - Tardive dyskinesia [Not Recovered/Not Resolved]
  - Tremor [Not Recovered/Not Resolved]
  - Drug ineffective [Unknown]
